FAERS Safety Report 10874712 (Version 3)
Quarter: 2015Q2

REPORT INFORMATION
  Report Type: Spontaneous
  Country: JP (occurrence: JP)
  Receive Date: 20150227
  Receipt Date: 20150417
  Transmission Date: 20150821
  Serious: Yes (Hospitalization)
  Sender: FDA-Public Use
  Company Number: JP-GLAXOSMITHKLINE-JP2015JPN023067

PATIENT
  Age: 7 Year
  Sex: Female
  Weight: 15 kg

DRUGS (4)
  1. DEPAKENE [Concomitant]
     Active Substance: VALPROIC ACID
     Dosage: 400 MG, QD
  2. LAMICTAL [Suspect]
     Active Substance: LAMOTRIGINE
     Dosage: 2 MG, QD
     Route: 048
     Dates: start: 20141111, end: 20141215
  3. LAMICTAL [Suspect]
     Active Substance: LAMOTRIGINE
     Dosage: 2 MG, BID
     Route: 048
     Dates: start: 20141216, end: 20150129
  4. LAMICTAL [Suspect]
     Active Substance: LAMOTRIGINE
     Indication: EPILEPSY
     Dosage: 2 MG, QOD
     Route: 048
     Dates: start: 20141014, end: 20141110

REACTIONS (5)
  - Eczema [Recovering/Resolving]
  - Rash [Recovering/Resolving]
  - Rash [Recovered/Resolved]
  - Lip erosion [Recovering/Resolving]
  - Scar [Unknown]

NARRATIVE: CASE EVENT DATE: 20150129
